FAERS Safety Report 6973707-X (Version None)
Quarter: 2010Q3

REPORT INFORMATION
  Report Type: 
  Country: None (occurrence: None)
  Receive Date: 20100909
  Receipt Date: 20100830
  Transmission Date: 20110219
  Serious: No
  Sender: FDA-Public Use
  Company Number: US-B.I. PHARMACEUTICALS,INC./RIDGEFIELD-2010-BP-09860BP

PATIENT
  Sex: Female

DRUGS (4)
  1. SPIRIVA [Suspect]
     Dosage: 18 MCG
     Route: 055
  2. PERFOROMIST [Concomitant]
  3. MEDICATION NOT FURTHER SPECIFIED [Concomitant]
     Indication: DIABETES MELLITUS
  4. MEDICATION NOT FURTHER SPECIFIED [Concomitant]
     Indication: HYPERTENSION

REACTIONS (3)
  - ANXIETY [None]
  - DYSPNOEA [None]
  - TREMOR [None]
